FAERS Safety Report 11029488 (Version 1)
Quarter: 2015Q2

REPORT INFORMATION
  Report Type: Spontaneous
  Country: US (occurrence: None)
  Receive Date: 20150414
  Receipt Date: 20150414
  Transmission Date: 20150821
  Serious: Yes (Death)
  Sender: FDA-Public Use
  Company Number: None

PATIENT
  Age: 71 Year
  Sex: Male
  Weight: 110.22 kg

DRUGS (10)
  1. WARFARIN [Suspect]
     Active Substance: WARFARIN
     Indication: PORTAL VEIN THROMBOSIS
     Dosage: 2MG START 10MG END?5 PILLS AT END?1 TIME DAILY?BY MOUTH?
     Route: 048
     Dates: start: 20140305, end: 20140323
  2. LOVAZA [Concomitant]
     Active Substance: OMEGA-3-ACID ETHYL ESTERS
  3. ALTRACE [Concomitant]
  4. ASPIRIN. [Concomitant]
     Active Substance: ASPIRIN
  5. LOPRESSOR [Concomitant]
     Active Substance: METOPROLOL TARTRATE
  6. IRON [Concomitant]
     Active Substance: IRON
  7. ZOCOR [Concomitant]
     Active Substance: SIMVASTATIN
  8. SYNTHROID [Concomitant]
     Active Substance: LEVOTHYROXINE SODIUM
  9. JANUVIA [Concomitant]
     Active Substance: SITAGLIPTIN PHOSPHATE
  10. NIASPAN [Concomitant]
     Active Substance: NIACIN

REACTIONS (2)
  - Abdominal pain upper [None]
  - Haemorrhage [None]

NARRATIVE: CASE EVENT DATE: 20140318
